FAERS Safety Report 22345666 (Version 2)
Quarter: 2023Q2

REPORT INFORMATION
  Report Type: Spontaneous
  Country: IT (occurrence: IT)
  Receive Date: 20230519
  Receipt Date: 20230525
  Transmission Date: 20230721
  Serious: Yes (Life-Threatening, Other)
  Sender: FDA-Public Use
  Company Number: IT-JAZZ PHARMACEUTICALS-2023-IT-010822

PATIENT

DRUGS (1)
  1. XYREM [Suspect]
     Active Substance: SODIUM OXYBATE
     Indication: Drug abuse
     Dosage: 50 MILLILITER
     Route: 048
     Dates: start: 20230310, end: 20230310

REACTIONS (5)
  - Drug abuse [Recovered/Resolved]
  - Toxicity to various agents [Unknown]
  - Psychomotor hyperactivity [Unknown]
  - Bradyphrenia [Unknown]
  - Overdose [Unknown]

NARRATIVE: CASE EVENT DATE: 20230310
